FAERS Safety Report 10229967 (Version 2)
Quarter: 2014Q2

REPORT INFORMATION
  Report Type: Spontaneous
  Country: JP (occurrence: JP)
  Receive Date: 20140611
  Receipt Date: 20140611
  Transmission Date: 20141212
  Serious: No
  Sender: FDA-Public Use
  Company Number: JP-SUCAMPO PHARMA AMERICAS, INC-SPI201400379

PATIENT
  Age: 80 Year
  Sex: Female

DRUGS (10)
  1. AMITIZA [Suspect]
     Indication: CONSTIPATION
     Dosage: 24 MCG, BID
     Route: 048
     Dates: start: 20140331, end: 20140410
  2. GASMOTIN [Concomitant]
     Route: 048
  3. SIGMART [Concomitant]
     Route: 048
  4. SEPAMIT-R [Concomitant]
     Route: 048
  5. BEZALEX [Concomitant]
     Route: 048
  6. THEODUR [Concomitant]
     Route: 048
  7. ZENASPIRIN [Concomitant]
     Route: 048
  8. UNKNOWN [Concomitant]
     Route: 048
  9. UNKNOWN [Concomitant]
     Route: 048
  10. ANTUP R [Concomitant]
     Route: 062

REACTIONS (6)
  - Musculoskeletal stiffness [Recovered/Resolved]
  - Musculoskeletal pain [Recovered/Resolved]
  - Pain in extremity [Recovered/Resolved]
  - Back pain [Recovered/Resolved]
  - Decreased appetite [Recovered/Resolved]
  - Chest discomfort [Recovered/Resolved]
